FAERS Safety Report 9297854 (Version 1)
Quarter: 2013Q2

REPORT INFORMATION
  Report Type: Spontaneous
  Country: US (occurrence: None)
  Receive Date: 20130517
  Receipt Date: 20130517
  Transmission Date: 20140414
  Serious: Yes (Hospitalization)
  Sender: FDA-Public Use
  Company Number: None

PATIENT
  Age: 64 Year
  Sex: Male

DRUGS (1)
  1. AUGMENTIN [Suspect]
     Indication: PILONIDAL CYST
     Dates: start: 20110718, end: 20110725

REACTIONS (15)
  - Jaundice [None]
  - Drug-induced liver injury [None]
  - Cholestasis [None]
  - Fatigue [None]
  - Asthenia [None]
  - Decreased appetite [None]
  - Blood bilirubin increased [None]
  - Blood alkaline phosphatase increased [None]
  - Rash [None]
  - Pruritus [None]
  - Hepatotoxicity [None]
  - Cognitive disorder [None]
  - Alanine aminotransferase increased [None]
  - Disturbance in attention [None]
  - Weight decreased [None]
